FAERS Safety Report 14498552 (Version 1)
Quarter: 2018Q1

REPORT INFORMATION
  Report Type: Report from Study
  Country: NL (occurrence: NL)
  Receive Date: 20180207
  Receipt Date: 20180207
  Transmission Date: 20180509
  Serious: Yes (Other)
  Sender: FDA-Public Use
  Company Number: PHHY2018NL018039

PATIENT
  Sex: Female

DRUGS (1)
  1. ZOMETA [Suspect]
     Active Substance: ZOLEDRONIC ACID
     Indication: BREAST CANCER
     Dosage: (ONCE PER 26 WEEKS)
     Route: 042
     Dates: start: 20160728

REACTIONS (9)
  - Pallor [Unknown]
  - White blood cell count decreased [Unknown]
  - Spleen disorder [Unknown]
  - Anaemia [Unknown]
  - Haemoglobin decreased [Unknown]
  - Weight decreased [Unknown]
  - Inappropriate schedule of drug administration [Unknown]
  - Leukopenia [Unknown]
  - Iron deficiency [Unknown]
